FAERS Safety Report 4929396-9 (Version None)
Quarter: 2006Q1

REPORT INFORMATION
  Report Type: 
  Country: None (occurrence: None)
  Receive Date: 20060224
  Receipt Date: 20060215
  Transmission Date: 20060701
  Serious: Yes (Other)
  Sender: FDA-Public Use
  Company Number: 2006-02-0984

PATIENT
  Sex: 0

DRUGS (2)
  1. TEMODAL [Suspect]
     Indication: GLIOBLASTOMA MULTIFORME
     Dosage: ORAL
     Route: 048
  2. RADIATION THERAPY [Suspect]
     Indication: GLIOBLASTOMA MULTIFORME
     Dosage: X-RAY THERAPY

REACTIONS (3)
  - COMA [None]
  - FACE OEDEMA [None]
  - RASH PAPULAR [None]
